FAERS Safety Report 14471823 (Version 1)
Quarter: 2018Q1

REPORT INFORMATION
  Report Type: Spontaneous
  Country: IT (occurrence: IT)
  Receive Date: 20180131
  Receipt Date: 20180131
  Transmission Date: 20180509
  Serious: Yes (Other)
  Sender: FDA-Public Use
  Company Number: IT-ALLERGAN-1804207US

PATIENT
  Age: 8 Year
  Sex: Female

DRUGS (4)
  1. MEMANTINE HCL - BP [Suspect]
     Active Substance: MEMANTINE
     Dosage: 2.5 MG, UNK
  2. INMUNOGLOBULINA HUMANA [Concomitant]
     Indication: PRODUCT USED FOR UNKNOWN INDICATION
     Dosage: UNK UNK, Q MONTH
     Route: 042
  3. LEVETIRACETAM. [Concomitant]
     Active Substance: LEVETIRACETAM
     Indication: EPILEPSY
  4. MEMANTINE HCL - BP [Suspect]
     Active Substance: MEMANTINE
     Indication: GENE MUTATION
     Dosage: 2.0 MG, UNK

REACTIONS (5)
  - Psychotic disorder [Unknown]
  - Psychomotor hyperactivity [Unknown]
  - Off label use [Unknown]
  - Anxiety [Unknown]
  - Drug administered to patient of inappropriate age [Unknown]
